FAERS Safety Report 6200309-5 (Version None)
Quarter: 2009Q2

REPORT INFORMATION
  Report Type: 
  Country: None (occurrence: None)
  Receive Date: 20090522
  Receipt Date: 20071017
  Transmission Date: 20091009
  Serious: No
  Sender: FDA-Public Use
  Company Number: US-ALEXION-A200700076

PATIENT
  Sex: Female
  Weight: 86.621 kg

DRUGS (4)
  1. SOLIRIS [Suspect]
     Indication: PAROXYSMAL NOCTURNAL HAEMOGLOBINURIA
     Dosage: 280 MG, SINGLE
     Route: 042
     Dates: start: 20071016, end: 20071016
  2. SOLIRIS [Suspect]
     Dosage: 7 ML, SINGLE
     Route: 042
     Dates: start: 20071017, end: 20071017
  3. CYCLOSPORINE [Concomitant]
  4. TYLENOL (CAPLET) [Concomitant]

REACTIONS (7)
  - ABDOMINAL DISCOMFORT [None]
  - CHEST DISCOMFORT [None]
  - DYSPNOEA [None]
  - FEELING HOT [None]
  - FLUSHING [None]
  - HYPERHIDROSIS [None]
  - OXYGEN SATURATION DECREASED [None]
